FAERS Safety Report 9603165 (Version 1)
Quarter: 2013Q4

REPORT INFORMATION
  Report Type: Spontaneous
  Country: CH (occurrence: CH)
  Receive Date: 20131007
  Receipt Date: 20131007
  Transmission Date: 20140711
  Serious: Yes (Hospitalization)
  Sender: FDA-Public Use
  Company Number: PHHY2013CH109410

PATIENT
  Age: 61 Year
  Sex: Male

DRUGS (2)
  1. CEFTRIAXONE [Suspect]
     Route: 042
  2. CEFTRIAXONE [Suspect]
     Dosage: 2 G/DAY

REACTIONS (7)
  - Visual impairment [Recovered/Resolved]
  - Abscess oral [Recovered/Resolved]
  - Agranulocytosis [Recovered/Resolved]
  - Stomatitis [Recovered/Resolved]
  - Pyrexia [Recovered/Resolved]
  - Neutropenia [Recovered/Resolved]
  - C-reactive protein increased [Unknown]
